FAERS Safety Report 13799936 (Version 1)
Quarter: 2017Q3

REPORT INFORMATION
  Report Type: Spontaneous
  Country: US (occurrence: US)
  Receive Date: 20170727
  Receipt Date: 20170727
  Transmission Date: 20171127
  Serious: No
  Sender: FDA-Public Use
  Company Number: US-JNJFOC-20170522411

PATIENT
  Age: 71 Year
  Sex: Female
  Weight: 52.16 kg

DRUGS (3)
  1. WOMENS ROGAINE UNSCENTED [Suspect]
     Active Substance: MINOXIDIL
     Route: 061
  2. SIMVASTATIN. [Concomitant]
     Active Substance: SIMVASTATIN
     Indication: ARTERIOSCLEROSIS
     Route: 065
  3. WOMENS ROGAINE UNSCENTED [Suspect]
     Active Substance: MINOXIDIL
     Indication: ALOPECIA
     Dosage: 1/2 CAPFUL, ABOUT 4 MONTHS
     Route: 061

REACTIONS (2)
  - Alopecia [Not Recovered/Not Resolved]
  - Product formulation issue [Unknown]
